FAERS Safety Report 9637822 (Version 1)
Quarter: 2013Q4

REPORT INFORMATION
  Report Type: Spontaneous
  Country: CN (occurrence: None)
  Receive Date: 20131018
  Receipt Date: 20131018
  Transmission Date: 20140711
  Serious: Yes (Other)
  Sender: FDA-Public Use
  Company Number: 7243393

PATIENT
  Sex: 0

DRUGS (1)
  1. EUTHYROX [Suspect]
     Indication: THYROID OPERATION
     Route: 048

REACTIONS (1)
  - Liver injury [None]
